FAERS Safety Report 17964421 (Version 1)
Quarter: 2020Q2

REPORT INFORMATION
  Report Type: Spontaneous
  Country: JP (occurrence: JP)
  Receive Date: 20200630
  Receipt Date: 20200630
  Transmission Date: 20200714
  Serious: Yes (Other)
  Sender: FDA-Public Use
  Company Number: JP-PFIZER INC-2020242434

PATIENT
  Age: 60 Year
  Sex: Female
  Weight: 46.2 kg

DRUGS (11)
  1. DALACIN S 600MG [Suspect]
     Active Substance: CLINDAMYCIN PHOSPHATE
     Indication: INFECTIOUS PLEURAL EFFUSION
     Dosage: 600 MG, 3X/DAY
     Route: 041
     Dates: start: 20200518, end: 20200526
  2. AMOXICILLIN. [Suspect]
     Active Substance: AMOXICILLIN
     Dosage: 250 MG, 3X/DAY
     Route: 048
     Dates: start: 20200527, end: 20200527
  3. TAKECAB [Suspect]
     Active Substance: VONOPRAZAN FUMARATE
     Indication: PROPHYLAXIS
     Dosage: 10 MG, 1X/DAY
     Route: 048
     Dates: start: 20200512, end: 20200518
  4. UNASYN-S 3G [Suspect]
     Active Substance: AMPICILLIN SODIUM\SULBACTAM SODIUM
     Indication: INFECTIOUS PLEURAL EFFUSION
     Dosage: 3 G, 3X/DAY
     Route: 041
     Dates: start: 20200513, end: 20200518
  5. CEFTRIAXONE SODIUM NP [Suspect]
     Active Substance: CEFTRIAXONE SODIUM
     Indication: INFECTIOUS PLEURAL EFFUSION
     Dosage: 1 G, 1X/DAY
     Route: 041
     Dates: start: 20200518, end: 20200526
  6. AUGMENTIN [Suspect]
     Active Substance: AMOXICILLIN\CLAVULANATE POTASSIUM
     Indication: INFECTIOUS PLEURAL EFFUSION
     Dosage: 375 MG, 3X/DAY
     Route: 048
     Dates: start: 20200507, end: 20200512
  7. AUGMENTIN [Suspect]
     Active Substance: AMOXICILLIN\CLAVULANATE POTASSIUM
     Dosage: 375 MG, 3X/DAY
     Route: 048
     Dates: start: 20200527, end: 20200527
  8. AMOXICILLIN. [Suspect]
     Active Substance: AMOXICILLIN
     Indication: INFECTIOUS PLEURAL EFFUSION
     Dosage: 250 MG, 3X/DAY
     Route: 048
     Dates: start: 20200507, end: 20200512
  9. CEFTRIAXONE SODIUM HYDRATE [Suspect]
     Active Substance: CEFTRIAXONE SODIUM
     Indication: INFECTIOUS PLEURAL EFFUSION
     Dosage: 1 G, 1X/DAY
     Route: 041
     Dates: start: 20200518, end: 20200526
  10. TRAMAL [Concomitant]
     Active Substance: TRAMADOL
     Indication: PAIN
     Dosage: 25 MG, 4X/DAY
     Route: 048
     Dates: start: 20200512, end: 20200514
  11. CALONAL [Concomitant]
     Active Substance: ACETAMINOPHEN
     Indication: PAIN
     Dosage: 500 MG, 4X/DAY
     Dates: start: 20200512, end: 20200514

REACTIONS (3)
  - Drug hypersensitivity [Recovering/Resolving]
  - Rash [Recovering/Resolving]
  - Feeling hot [Recovering/Resolving]

NARRATIVE: CASE EVENT DATE: 20200518
